FAERS Safety Report 10600737 (Version 1)
Quarter: 2014Q4

REPORT INFORMATION
  Report Type: Spontaneous
  Country: US (occurrence: None)
  Receive Date: 20141119
  Receipt Date: 20141119
  Transmission Date: 20150529
  Serious: No
  Sender: FDA-Public Use
  Company Number: 1000071140

PATIENT
  Age: 57 Year
  Sex: Female

DRUGS (1)
  1. TUDORZA PRESSAIR [Suspect]
     Active Substance: ACLIDINIUM BROMIDE
     Dosage: RESPIRATORY
     Route: 055
     Dates: start: 201406

REACTIONS (2)
  - Headache [None]
  - Intentional product misuse [None]

NARRATIVE: CASE EVENT DATE: 201406
